FAERS Safety Report 16126611 (Version 1)
Quarter: 2019Q2

REPORT INFORMATION
  Report Type: Spontaneous
  Country: US (occurrence: US)
  Receive Date: 20190327
  Receipt Date: 20190327
  Transmission Date: 20190711
  Serious: No
  Sender: FDA-Public Use
  Company Number: None

PATIENT
  Age: 54 Year
  Sex: Male
  Weight: 94.95 kg

DRUGS (5)
  1. ZOLOFT 50 MG [Concomitant]
  2. MELATONIN 6 MG [Concomitant]
  3. EMGALITY [Suspect]
     Active Substance: GALCANEZUMAB-GNLM
     Indication: MIGRAINE PROPHYLAXIS
     Dosage: ?          QUANTITY:2 INJECTION(S);OTHER FREQUENCY:1 MONTHLY;?
     Route: 058
     Dates: start: 20190325
  4. TOPROL XL [Concomitant]
     Active Substance: METOPROLOL SUCCINATE
  5. AMLODIPINE 10 MG [Concomitant]
     Active Substance: AMLODIPINE BESYLATE

REACTIONS (3)
  - Tinnitus [None]
  - Drug interaction [None]
  - Supraventricular tachycardia [None]

NARRATIVE: CASE EVENT DATE: 20190326
